FAERS Safety Report 23932010 (Version 1)
Quarter: 2024Q2

REPORT INFORMATION
  Report Type: Other
  Country: FR (occurrence: FR)
  Receive Date: 20240603
  Receipt Date: 20240603
  Transmission Date: 20240716
  Serious: Yes (Hospitalization)
  Sender: FDA-Public Use
  Company Number: None

PATIENT

DRUGS (9)
  1. IRBESARTAN [Suspect]
     Active Substance: IRBESARTAN
     Indication: Hypertension
     Dosage: 75 MILLIGRAM, QD
     Route: 048
     Dates: end: 20240208
  2. FUROSEMIDE [Suspect]
     Active Substance: FUROSEMIDE
     Indication: Hypertension
     Dosage: 125 MILLIGRAM, QD
     Route: 048
     Dates: start: 20231124
  3. FUROSEMIDE [Suspect]
     Active Substance: FUROSEMIDE
     Indication: Hypertension
     Dosage: 40 MILLIGRAM, QD
     Route: 048
     Dates: end: 20240202
  4. FUROSEMIDE [Suspect]
     Active Substance: FUROSEMIDE
     Dosage: 60 MILLIGRAM, QD
     Route: 048
     Dates: end: 20240202
  5. ELIQUIS [Concomitant]
     Active Substance: APIXABAN
     Indication: Product used for unknown indication
     Dosage: UNK
     Route: 065
  6. IPRATROPIUM BROMIDE [Concomitant]
     Active Substance: IPRATROPIUM BROMIDE\IPRATROPIUM BROMIDE ANHYDROUS
     Indication: Product used for unknown indication
     Dosage: UNK
     Route: 065
  7. BISOPROLOL FUMARATE [Concomitant]
     Active Substance: BISOPROLOL FUMARATE
     Indication: Product used for unknown indication
     Dosage: UNK
     Route: 065
  8. FENOTEROL HYDROBROMIDE [Concomitant]
     Active Substance: FENOTEROL HYDROBROMIDE
     Indication: Product used for unknown indication
     Dosage: UNK
     Route: 065
  9. FOLIC ACID [Concomitant]
     Active Substance: FOLIC ACID
     Indication: Product used for unknown indication
     Dosage: UNK
     Route: 065

REACTIONS (2)
  - Hyponatraemia [Recovering/Resolving]
  - Hypotension [Recovered/Resolved]

NARRATIVE: CASE EVENT DATE: 20240208
